FAERS Safety Report 7962349-5 (Version None)
Quarter: 2011Q4

REPORT INFORMATION
  Report Type: 
  Country: None (occurrence: None)
  Receive Date: 20111206
  Receipt Date: 20111129
  Transmission Date: 20120403
  Serious: Yes (Other)
  Sender: FDA-Public Use
  Company Number: AUR-APL-2011-05973

PATIENT
  Age: 12 Month
  Sex: Male

DRUGS (1)
  1. ONDANSETRON [Suspect]
     Indication: PRODUCT USED FOR UNKNOWN INDICATION
     Dosage: ORAL
     Route: 048

REACTIONS (4)
  - SEROTONIN SYNDROME [None]
  - ACCIDENTAL DRUG INTAKE BY CHILD [None]
  - HEPATOTOXICITY [None]
  - CONVULSION [None]
